FAERS Safety Report 7779637-8 (Version None)
Quarter: 2011Q3

REPORT INFORMATION
  Report Type: 
  Country: None (occurrence: None)
  Receive Date: 20110927
  Receipt Date: 20110916
  Transmission Date: 20111222
  Serious: Yes (Hospitalization)
  Sender: FDA-Public Use
  Company Number: US-BAYER-201037167NA

PATIENT
  Age: 45 Year
  Sex: Female
  Weight: 97.506 kg

DRUGS (11)
  1. YAZ [Suspect]
     Indication: ORAL CONTRACEPTION
     Dosage: UNK UNK, UNK
     Route: 048
     Dates: start: 20061001, end: 20061124
  2. DILANTIN [Concomitant]
     Indication: CONVULSION PROPHYLAXIS
     Dosage: UNK
     Dates: start: 20060101
  3. PERIACTIN [Concomitant]
     Dosage: UNK
     Dates: start: 20070101
  4. IRON SUPPLEMENTATION [Concomitant]
     Indication: IRON DEFICIENCY ANAEMIA
  5. HYDROCHLOROTHIAZIDE [Concomitant]
     Dosage: 12.5 MG, QD
  6. DIAMOX SRC [Concomitant]
     Dosage: UNK
     Dates: start: 20070101
  7. DIOVAN [Concomitant]
     Indication: HYPERTENSION
  8. SYNTHROID [Concomitant]
     Dosage: UNK
     Dates: start: 20000101, end: 20060101
  9. FERROUS GLUCONATE [Concomitant]
     Dosage: 300 MG, TID
  10. TOPAMAX [Concomitant]
     Dosage: UNK
     Dates: start: 20070101
  11. DIOVAN HCT [Concomitant]
     Dosage: UNK
     Dates: start: 20000101

REACTIONS (15)
  - APHASIA [None]
  - PAIN [None]
  - EMOTIONAL DISTRESS [None]
  - CONVULSION [None]
  - READING DISORDER [None]
  - BACK PAIN [None]
  - DYSKINESIA [None]
  - PAIN IN EXTREMITY [None]
  - INTRACRANIAL VENOUS SINUS THROMBOSIS [None]
  - VISUAL IMPAIRMENT [None]
  - HAEMORRHAGIC CEREBRAL INFARCTION [None]
  - HEADACHE [None]
  - CHEST PAIN [None]
  - PULMONARY EMBOLISM [None]
  - EAR PAIN [None]
